FAERS Safety Report 25225464 (Version 1)
Quarter: 2025Q2

REPORT INFORMATION
  Report Type: Spontaneous
  Country: US (occurrence: US)
  Receive Date: 20250422
  Receipt Date: 20250422
  Transmission Date: 20250717
  Serious: No
  Sender: LYNE LABORATORIES
  Company Number: US-Lyne Laboratories Inc.-2175358

PATIENT
  Sex: Male

DRUGS (4)
  1. NYSTATIN [Suspect]
     Active Substance: NYSTATIN
     Indication: Product used for unknown indication
  2. VASELINE PURE [Concomitant]
     Active Substance: PETROLATUM
  3. A AND D DIAPER RASH AND SKIN PROTECTANT [Concomitant]
     Active Substance: LANOLIN\PETROLATUM
  4. AQUAPHOR [Concomitant]
     Active Substance: PETROLATUM

REACTIONS (1)
  - Burning sensation [Unknown]
